FAERS Safety Report 10905090 (Version 1)
Quarter: 2015Q1

REPORT INFORMATION
  Report Type: Spontaneous
  Country: US (occurrence: US)
  Receive Date: 20150311
  Receipt Date: 20150311
  Transmission Date: 20150721
  Serious: No
  Sender: FDA-Public Use
  Company Number: US-009507513-1502USA002460

PATIENT
  Age: 22 Year
  Sex: Female
  Weight: 63.49 kg

DRUGS (1)
  1. NUVARING [Suspect]
     Active Substance: ETHINYL ESTRADIOL\ETONOGESTREL
     Indication: MENSTRUAL CYCLE MANAGEMENT
     Dosage: 3 WEEKS IN/ 1 WEEK OUT
     Route: 067
     Dates: start: 20150104

REACTIONS (3)
  - Abnormal withdrawal bleeding [Unknown]
  - Inappropriate schedule of drug administration [Unknown]
  - Drug administration error [Unknown]

NARRATIVE: CASE EVENT DATE: 20150104
